FAERS Safety Report 25888921 (Version 1)
Quarter: 2025Q4

REPORT INFORMATION
  Report Type: Spontaneous
  Country: US (occurrence: US)
  Receive Date: 20251007
  Receipt Date: 20251007
  Transmission Date: 20260118
  Serious: No
  Sender: NOBELPHARMA
  Company Number: US-NPA-2025-AER-01672

PATIENT
  Age: 14 Year
  Sex: Male

DRUGS (10)
  1. HYFTOR [Suspect]
     Active Substance: SIROLIMUS
     Indication: Tuberous sclerosis complex
     Route: 061
     Dates: start: 20250722
  2. FIBERCON [Concomitant]
     Active Substance: CALCIUM POLYCARBOPHIL
  3. VITAMIN D [Concomitant]
     Active Substance: VITAMIN D NOS
  4. CLONIDINE [Concomitant]
     Active Substance: CLONIDINE
  5. IBUPROFEN [Concomitant]
     Active Substance: IBUPROFEN
  6. KETOCONAZOLE [Concomitant]
     Active Substance: KETOCONAZOLE
  7. AMMONIUM LACTATE [Concomitant]
     Active Substance: AMMONIUM LACTATE
  8. NAYZILAM [Concomitant]
     Active Substance: MIDAZOLAM
  9. OXCARBAZEPINE [Concomitant]
     Active Substance: OXCARBAZEPINE
  10. MIRALAX [Concomitant]
     Active Substance: POLYETHYLENE GLYCOL 3350

REACTIONS (2)
  - Erythema of eyelid [Unknown]
  - Pruritus [Unknown]
